FAERS Safety Report 15645555 (Version 7)
Quarter: 2019Q4

REPORT INFORMATION
  Report Type: Spontaneous
  Country: US (occurrence: US)
  Receive Date: 20181121
  Receipt Date: 20191009
  Transmission Date: 20200122
  Serious: No
  Sender: FDA-Public Use
  Company Number: US-PFIZER INC-2018393105

PATIENT
  Age: 58 Year
  Sex: Male

DRUGS (9)
  1. LOSARTAN. [Concomitant]
     Active Substance: LOSARTAN
     Dosage: UNK(50 MG DAILY UP TO 100 MG DAILY)
  2. IRBESARTAN. [Concomitant]
     Active Substance: IRBESARTAN
     Indication: HYPERTENSION
     Dosage: 150 MG, 1X/DAY (AT NIGHT)
     Dates: start: 201807
  3. VIAGRA [Suspect]
     Active Substance: SILDENAFIL CITRATE
     Indication: ANAL STENOSIS
     Dosage: 1 TABLET, 2X/DAY
     Route: 048
  4. VIAGRA [Suspect]
     Active Substance: SILDENAFIL CITRATE
     Dosage: 50 MG, 2X/DAY
     Route: 048
  5. VALSARTAN. [Concomitant]
     Active Substance: VALSARTAN
     Dosage: 80 MG, DAILY
  6. VIAGRA [Suspect]
     Active Substance: SILDENAFIL CITRATE
     Indication: RECTAL INJURY
     Dosage: 50 MG, DAILY [1/2 TABLET]
     Route: 048
  7. VIAGRA [Suspect]
     Active Substance: SILDENAFIL CITRATE
     Indication: ANAL INCONTINENCE
     Dosage: 100 MG, DAILY[HALF TO ONE TABLET]
     Route: 048
  8. VIAGRA [Suspect]
     Active Substance: SILDENAFIL CITRATE
     Indication: LARGE INTESTINAL STENOSIS
     Dosage: 50 MG, 2X/DAY
     Route: 048
     Dates: start: 20181218
  9. VIAGRA [Suspect]
     Active Substance: SILDENAFIL CITRATE
     Indication: ANAL CANCER
     Dosage: 100 MG, DAILY
     Dates: start: 20181112

REACTIONS (5)
  - Off label use [Unknown]
  - Drug effective for unapproved indication [Unknown]
  - Neuralgia [Unknown]
  - Cardiovascular disorder [Unknown]
  - Blood glucose abnormal [Unknown]
